FAERS Safety Report 19741687 (Version 2)
Quarter: 2021Q3

REPORT INFORMATION
  Report Type: Spontaneous
  Country: LT (occurrence: LT)
  Receive Date: 20210824
  Receipt Date: 20210826
  Transmission Date: 20211014
  Serious: Yes (Other)
  Sender: FDA-Public Use
  Company Number: LT-PFIZER INC-202101029153

PATIENT
  Age: 70 Year
  Sex: Female

DRUGS (2)
  1. PREDNISOLONE. [Concomitant]
     Active Substance: PREDNISOLONE
     Indication: INFLAMMATORY MYOFIBROBLASTIC TUMOUR
     Dosage: 40 MG, 1X/DAY
  2. CELECOXIB. [Suspect]
     Active Substance: CELECOXIB
     Indication: INFLAMMATORY MYOFIBROBLASTIC TUMOUR
     Dosage: 100 MG, 1X/DAY

REACTIONS (3)
  - Bacterial infection [Not Recovered/Not Resolved]
  - Drug ineffective [Not Recovered/Not Resolved]
  - Off label use [Unknown]
